FAERS Safety Report 5902848-0 (Version None)
Quarter: 2008Q3

REPORT INFORMATION
  Report Type: 
  Country: None (occurrence: None)
  Receive Date: 20080929
  Receipt Date: 20080929
  Transmission Date: 20090109
  Serious: No
  Sender: FDA-Public Use
  Company Number: None

PATIENT
  Age: 58 Year
  Sex: Male
  Weight: 121 kg

DRUGS (1)
  1. PIPERACILLIN [Suspect]
     Indication: SEPSIS
     Dosage: 2.25 GM OTHER IV
     Route: 042
     Dates: start: 20080908, end: 20080908

REACTIONS (6)
  - ANAPHYLACTIC REACTION [None]
  - ANGIOEDEMA [None]
  - CYANOSIS [None]
  - HYPOTENSION [None]
  - TACHYCARDIA [None]
  - TACHYPNOEA [None]
